FAERS Safety Report 10716086 (Version 1)
Quarter: 2015Q1

REPORT INFORMATION
  Report Type: Spontaneous
  Country: IN (occurrence: IN)
  Receive Date: 20150116
  Receipt Date: 20150116
  Transmission Date: 20150721
  Serious: Yes (Hospitalization, Other)
  Sender: FDA-Public Use
  Company Number: IN-SUN PHARMACEUTICAL INDUSTRIES LTD-2015SUN00080

PATIENT

DRUGS (1)
  1. DICORATE ER [Suspect]
     Active Substance: DIVALPROEX SODIUM
     Indication: BIPOLAR DISORDER
     Dosage: 1000 MG, UNK
     Route: 065

REACTIONS (3)
  - Wrong technique in drug usage process [Unknown]
  - Adverse drug reaction [Unknown]
  - Subdural haematoma [Unknown]
